FAERS Safety Report 5924121-7 (Version None)
Quarter: 2008Q3

REPORT INFORMATION
  Report Type: 
  Country: None (occurrence: None)
  Receive Date: 20080909
  Receipt Date: 20080528
  Transmission Date: 20090109
  Serious: Yes (Life-Threatening, Hospitalization)
  Sender: FDA-Public Use
  Company Number: 163-20785-08040131

PATIENT
  Age: 66 Year
  Sex: Male

DRUGS (6)
  1. THALOMID [Suspect]
     Indication: MULTIPLE MYELOMA
     Dosage: 200 MG, 4 IN 1 D, ORAL : 150 MG, 3 IN 1 D, ORAL
     Route: 048
     Dates: start: 20080208, end: 20080201
  2. THALOMID [Suspect]
     Indication: MULTIPLE MYELOMA
     Dosage: 200 MG, 4 IN 1 D, ORAL : 150 MG, 3 IN 1 D, ORAL
     Route: 048
     Dates: start: 20080305
  3. EMPIRIC ANTIBIOTICS (ANTIBIOTICS) [Concomitant]
  4. BACTRIM [Concomitant]
  5. LEVAQUIN [Concomitant]
  6. DIFLUCAN [Concomitant]

REACTIONS (1)
  - PULMONARY EMBOLISM [None]
